FAERS Safety Report 8333507-5 (Version None)
Quarter: 2012Q2

REPORT INFORMATION
  Report Type: 
  Country: None (occurrence: None)
  Receive Date: 20120503
  Receipt Date: 20101108
  Transmission Date: 20120825
  Serious: No
  Sender: FDA-Public Use
  Company Number: US-TEVA-2010005834

PATIENT
  Sex: Male
  Weight: 111.23 kg

DRUGS (2)
  1. NUVIGIL [Suspect]
     Indication: SLEEP APNOEA SYNDROME
  2. NUVIGIL [Suspect]
     Indication: NARCOLEPSY
     Route: 048
     Dates: start: 20101101

REACTIONS (3)
  - HEADACHE [None]
  - DRUG INEFFECTIVE [None]
  - MUSCLE TIGHTNESS [None]
